FAERS Safety Report 11717057 (Version 2)
Quarter: 2015Q4

REPORT INFORMATION
  Report Type: Spontaneous
  Country: US (occurrence: US)
  Receive Date: 20151104
  Receipt Date: 20151120
  Transmission Date: 20160304
  Serious: No
  Sender: FDA-Public Use
  Company Number: US-ELI_LILLY_AND_COMPANY-US201105004625

PATIENT
  Age: 66 Year
  Sex: Female

DRUGS (2)
  1. FORTEO [Suspect]
     Active Substance: TERIPARATIDE
     Indication: OSTEOPOROSIS
     Dosage: 20 UG, QD
     Dates: start: 20110419
  2. FORTEO [Suspect]
     Active Substance: TERIPARATIDE
     Dosage: 20 UG, QD

REACTIONS (11)
  - Malaise [Not Recovered/Not Resolved]
  - Depression [Unknown]
  - Limb discomfort [Unknown]
  - Arthralgia [Unknown]
  - Arthropathy [Unknown]
  - Emotional disorder [Unknown]
  - Pain in extremity [Recovered/Resolved]
  - Pain in extremity [Unknown]
  - Muscular weakness [Unknown]
  - Back pain [Unknown]
  - Fear [Unknown]

NARRATIVE: CASE EVENT DATE: 20110511
